FAERS Safety Report 4293196-6 (Version None)
Quarter: 2004Q1

REPORT INFORMATION
  Report Type: 
  Country: None (occurrence: None)
  Receive Date: 20040210
  Receipt Date: 20040130
  Transmission Date: 20041129
  Serious: Yes (Death, Other)
  Sender: FDA-Public Use
  Company Number: 2004006595

PATIENT
  Age: 76 Year
  Sex: Male

DRUGS (8)
  1. TIKOSYN [Suspect]
     Dosage: 250 MCG (BID), ORAL
     Route: 048
     Dates: start: 20030910, end: 20030101
  2. NITROGLYCERIN [Concomitant]
  3. DIGITALIS (DIGITALIS) [Concomitant]
  4. WARFARIN SODIUM [Concomitant]
  5. LISINOPRIL [Concomitant]
  6. FUROSEMIDE [Concomitant]
  7. PRAVASTATIN SODIUM [Concomitant]
  8. LEVOTHYROXINE SODIUM [Concomitant]

REACTIONS (1)
  - DEATH [None]
